FAERS Safety Report 7776796-8 (Version None)
Quarter: 2011Q3

REPORT INFORMATION
  Report Type: 
  Country: None (occurrence: None)
  Receive Date: 20110926
  Receipt Date: 20110916
  Transmission Date: 20111222
  Serious: Yes (Other)
  Sender: FDA-Public Use
  Company Number: US-UCBSA-041518

PATIENT
  Age: 48 Year
  Sex: Male
  Weight: 86.2 kg

DRUGS (4)
  1. KEPPRA XR [Suspect]
     Indication: CONVULSION
  2. HYDROCODONE [Concomitant]
     Indication: MUSCULOSKELETAL PAIN
     Dosage: AS NEEDED 0.5 MG
  3. KLONOPIN [Concomitant]
     Indication: EMOTIONAL DISORDER
     Dosage: AS NEEDED 0.5 MG
  4. DILANTIN [Suspect]
     Indication: CONVULSION
     Dosage: 200 MG IN MORNING AND 300 MG AT NIGHT
     Route: 048
     Dates: start: 20070101

REACTIONS (7)
  - CONVULSION [None]
  - TARDIVE DYSKINESIA [None]
  - INFLUENZA LIKE ILLNESS [None]
  - PAROSMIA [None]
  - DYSGEUSIA [None]
  - INAPPROPRIATE SCHEDULE OF DRUG ADMINISTRATION [None]
  - EMOTIONAL DISORDER [None]
